FAERS Safety Report 4863857-6 (Version None)
Quarter: 2005Q4

REPORT INFORMATION
  Report Type: 
  Country: None (occurrence: None)
  Receive Date: 20051222
  Receipt Date: 20051020
  Transmission Date: 20060501
  Serious: No
  Sender: FDA-Public Use
  Company Number: US-GLAXOSMITHKLINE-A0579003A

PATIENT
  Age: 69 Year
  Sex: Female

DRUGS (13)
  1. FLONASE [Suspect]
     Dosage: 1SPR TWICE PER DAY
     Route: 045
     Dates: start: 20010101
  2. COZAAR [Concomitant]
  3. LASIX [Concomitant]
  4. AMARYL [Concomitant]
  5. COMBIVENT [Concomitant]
  6. ALBUTEROL [Concomitant]
  7. PRAVACHOL [Concomitant]
  8. MS CONTIN [Concomitant]
  9. KLONOPIN [Concomitant]
  10. SEROQUEL [Concomitant]
  11. PAMELOR [Concomitant]
  12. PRILOSEC [Concomitant]
  13. PHENERGAN [Concomitant]

REACTIONS (4)
  - CHEST PAIN [None]
  - HEART RATE INCREASED [None]
  - PALPITATIONS [None]
  - PHARMACEUTICAL PRODUCT COMPLAINT [None]
